FAERS Safety Report 6768243-X (Version None)
Quarter: 2010Q2

REPORT INFORMATION
  Report Type: 
  Country: None (occurrence: None)
  Receive Date: 20100614
  Receipt Date: 20100608
  Transmission Date: 20101027
  Serious: Yes (Life-Threatening)
  Sender: FDA-Public Use
  Company Number: UA-B.I. PHARMACEUTICALS,INC./RIDGEFIELD-2010-AP-00299AP

PATIENT
  Age: 49 Year
  Sex: Male

DRUGS (1)
  1. MIRAPEX [Suspect]
     Indication: PARKINSON'S DISEASE
     Dosage: 3 TIMES/DAY
     Route: 048
     Dates: start: 20100501

REACTIONS (2)
  - CONVULSION [None]
  - SYNCOPE [None]
